FAERS Safety Report 5497742-6 (Version None)
Quarter: 2007Q4

REPORT INFORMATION
  Report Type: 
  Country: None (occurrence: None)
  Receive Date: 20071025
  Receipt Date: 20070410
  Transmission Date: 20080405
  Serious: No
  Sender: FDA-Public Use
  Company Number: A0640061A

PATIENT
  Sex: Female

DRUGS (3)
  1. ADVAIR DISKUS 100/50 [Suspect]
     Indication: ASTHMA
     Route: 055
     Dates: start: 20010101
  2. ECOTRIN [Concomitant]
  3. PRILOSEC [Concomitant]

REACTIONS (6)
  - ERYTHEMA [None]
  - NASAL DISCOMFORT [None]
  - NASAL OEDEMA [None]
  - PHARMACEUTICAL PRODUCT COMPLAINT [None]
  - RHINORRHOEA [None]
  - SKIN DISORDER [None]
